FAERS Safety Report 23294037 (Version 2)
Quarter: 2024Q1

REPORT INFORMATION
  Report Type: Report from Study
  Country: US (occurrence: None)
  Receive Date: 20231213
  Receipt Date: 20240105
  Transmission Date: 20240410
  Serious: Yes (Other)
  Sender: FDA-Public Use
  Company Number: 2023A282938

PATIENT
  Sex: Male

DRUGS (9)
  1. TAGRISSO [Suspect]
     Active Substance: OSIMERTINIB
     Indication: Lung carcinoma cell type unspecified stage 0
     Route: 048
  2. ALBUTEROL [Concomitant]
     Active Substance: ALBUTEROL
  3. ALPHA LIPOIC [Concomitant]
  4. ECHINACEA [Concomitant]
     Active Substance: ECHINACEA, UNSPECIFIED
  5. OMEPRAZOLE [Concomitant]
     Active Substance: OMEPRAZOLE
  6. VITAMIN B12 [Concomitant]
     Active Substance: CYANOCOBALAMIN
  7. MENAQUINONE 6 [Concomitant]
     Active Substance: MENAQUINONE 6
  8. MONTELUKAST [Concomitant]
     Active Substance: MONTELUKAST SODIUM
  9. TAGRISSO [Concomitant]
     Active Substance: OSIMERTINIB

REACTIONS (4)
  - Metastases to stomach [Unknown]
  - Metastases to lymph nodes [Unknown]
  - Diarrhoea [Unknown]
  - Product dose omission issue [Unknown]
